FAERS Safety Report 7256741-4 (Version None)
Quarter: 2011Q1

REPORT INFORMATION
  Report Type: 
  Country: None (occurrence: None)
  Receive Date: 20110129
  Receipt Date: 20100630
  Transmission Date: 20110831
  Serious: No
  Sender: FDA-Public Use
  Company Number: US-ABBOTT-10P-163-0655054-00

PATIENT
  Age: 51 Year
  Sex: Female

DRUGS (4)
  1. HUMIRA [Suspect]
     Route: 058
     Dates: start: 20090801, end: 20100601
  2. HUMIRA [Suspect]
     Indication: CROHN'S DISEASE
     Route: 058
     Dates: start: 20071201, end: 20090801
  3. PENTASA [Concomitant]
     Indication: CROHN'S DISEASE
  4. HUMIRA [Suspect]
     Route: 058
     Dates: start: 20100601

REACTIONS (1)
  - SINUSITIS [None]
